FAERS Safety Report 6737335-3 (Version None)
Quarter: 2010Q2

REPORT INFORMATION
  Report Type: 
  Country: None (occurrence: None)
  Receive Date: 20100524
  Receipt Date: 20100517
  Transmission Date: 20101027
  Serious: Yes (Death)
  Sender: FDA-Public Use
  Company Number: US-ASTRAZENECA-2009SE15283

PATIENT
  Sex: Male

DRUGS (10)
  1. SEROQUEL [Suspect]
     Route: 048
     Dates: start: 20040312
  2. EFFEXOR [Concomitant]
     Dates: start: 20040421
  3. QUININE [Concomitant]
     Dates: start: 20040421
  4. DESYREL [Concomitant]
     Dates: start: 20040421
  5. LORAZEPAM [Concomitant]
     Dosage: 1 MG, AT BEDTIME, PRN
     Dates: start: 20040312
  6. GLUCOVANCE [Concomitant]
     Dosage: 5/500 MG BID
     Dates: start: 20040312
  7. MILK THISTLE [Concomitant]
     Dates: start: 20040312
  8. LORTAB [Concomitant]
     Dosage: 7.5 MG PRN
     Dates: start: 20040312
  9. IMIPRAMINE [Concomitant]
     Dates: start: 20040312
  10. PRIMIDONE [Concomitant]
     Dosage: 50 MG, PRN
     Dates: start: 20040312

REACTIONS (2)
  - DEATH [None]
  - DIABETES MELLITUS [None]
